FAERS Safety Report 4915687-4 (Version None)
Quarter: 2006Q1

REPORT INFORMATION
  Report Type: 
  Country: None (occurrence: None)
  Receive Date: 20060214
  Receipt Date: 20060111
  Transmission Date: 20060701
  Serious: Yes (Death)
  Sender: FDA-Public Use
  Company Number: A03200600232

PATIENT
  Sex: 0

DRUGS (3)
  1. OXALIPLATIN - SOLUTION [Suspect]
     Indication: RECTAL CANCER
     Dosage: INTRAVENOUS NOS
     Route: 042
  2. FLUOROURACIL [Suspect]
     Indication: RECTAL CANCER
     Dosage: INTRAVENOUS NOS
     Route: 042
  3. LEUCOVORIN CALCIUM [Suspect]
     Indication: RECTAL CANCER
     Dosage: INTRAVENOUS NOS

REACTIONS (1)
  - PULMONARY TOXICITY [None]
